FAERS Safety Report 4809367-3 (Version None)
Quarter: 2005Q4

REPORT INFORMATION
  Report Type: 
  Country: None (occurrence: None)
  Receive Date: 20051021
  Receipt Date: 20051007
  Transmission Date: 20060501
  Serious: Yes (Other)
  Sender: FDA-Public Use
  Company Number: FR-2005-019569

PATIENT
  Age: 38 Year
  Sex: Male
  Weight: 70 kg

DRUGS (1)
  1. MAGNEVIST [Suspect]
     Indication: NUCLEAR MAGNETIC RESONANCE IMAGING
     Dosage: 10 ML, 1 DOSE, INTRA-ARTICULAR
     Route: 014
     Dates: start: 20050728, end: 20050728

REACTIONS (6)
  - BURNING SENSATION [None]
  - INJECTION SITE PAIN [None]
  - MEDICATION ERROR [None]
  - MOVEMENT DISORDER [None]
  - SHOULDER PAIN [None]
  - WRONG DRUG ADMINISTERED [None]
